FAERS Safety Report 9301252 (Version 5)
Quarter: 2013Q3

REPORT INFORMATION
  Report Type: Spontaneous
  Country: JP (occurrence: JP)
  Receive Date: 20130521
  Receipt Date: 20130812
  Transmission Date: 20140515
  Serious: Yes (Hospitalization)
  Sender: FDA-Public Use
  Company Number: JP-GLAXOSMITHKLINE-B0881625A

PATIENT
  Age: 62 Year
  Sex: Female

DRUGS (6)
  1. LAMICTAL [Suspect]
     Indication: AFFECT LABILITY
     Dosage: 25MG PER DAY
     Route: 048
     Dates: start: 20130216, end: 20130327
  2. PAXIL CR [Concomitant]
     Indication: DEPRESSION
     Dosage: 25MG PER DAY
     Route: 048
     Dates: start: 20130212, end: 20130410
  3. SILECE [Concomitant]
     Indication: INSOMNIA
     Dosage: 2MG PER DAY
     Route: 048
     Dates: start: 20130108, end: 20130513
  4. LIMAS [Concomitant]
     Dosage: 400MG PER DAY
     Route: 048
     Dates: start: 20130108, end: 20130225
  5. PURSENNID [Concomitant]
     Indication: CONSTIPATION
     Dosage: 24MG PER DAY
     Route: 048
     Dates: start: 20130108, end: 20130313
  6. MAGMITT [Concomitant]
     Indication: CONSTIPATION
     Dosage: 1G PER DAY
     Route: 048
     Dates: start: 20130131, end: 20130213

REACTIONS (15)
  - Pneumonia [Unknown]
  - Infectious pleural effusion [Unknown]
  - Drug eruption [Recovering/Resolving]
  - Drug eruption [Recovering/Resolving]
  - Oropharyngeal pain [Unknown]
  - Generalised erythema [Unknown]
  - Depression [Unknown]
  - Rash [Recovering/Resolving]
  - Oral disorder [Unknown]
  - Hypophagia [Unknown]
  - Skin exfoliation [Unknown]
  - Lip erosion [Recovering/Resolving]
  - Conjunctival hyperaemia [Recovering/Resolving]
  - Vulval disorder [Recovering/Resolving]
  - Visual acuity reduced [Unknown]
